FAERS Safety Report 4411155-7 (Version None)
Quarter: 2004Q3

REPORT INFORMATION
  Report Type: 
  Country: None (occurrence: None)
  Receive Date: 20040729
  Receipt Date: 20040630
  Transmission Date: 20050211
  Serious: Yes (Other)
  Sender: FDA-Public Use
  Company Number: PHBS2004JP08871

PATIENT
  Age: 7 Year
  Sex: Male

DRUGS (1)
  1. RITALIN [Suspect]
     Indication: ATTENTION DEFICIT/HYPERACTIVITY DISORDER
     Dosage: 1 MG/D
     Route: 048

REACTIONS (1)
  - BLOOD CREATINE PHOSPHOKINASE INCREASED [None]
